FAERS Safety Report 19559343 (Version 2)
Quarter: 2021Q3

REPORT INFORMATION
  Report Type: Spontaneous
  Country: JP (occurrence: JP)
  Receive Date: 20210715
  Receipt Date: 20210720
  Transmission Date: 20211014
  Serious: Yes (Hospitalization)
  Sender: FDA-Public Use
  Company Number: JP-DSJP-DSJ-2021-120735

PATIENT
  Age: 62 Year
  Sex: Female
  Weight: 43 kg

DRUGS (3)
  1. ENHERTU [Suspect]
     Active Substance: FAM-TRASTUZUMAB DERUXTECAN-NXKI
     Indication: INVASIVE DUCTAL BREAST CARCINOMA
     Dosage: 230 MG
     Route: 041
     Dates: start: 20210518, end: 20210518
  2. ENHERTU [Suspect]
     Active Substance: FAM-TRASTUZUMAB DERUXTECAN-NXKI
     Dosage: 185 MG
     Route: 041
     Dates: start: 20210629, end: 20210629
  3. ENHERTU [Suspect]
     Active Substance: FAM-TRASTUZUMAB DERUXTECAN-NXKI
     Dosage: 185 MG
     Route: 041
     Dates: start: 20210608, end: 20210608

REACTIONS (3)
  - Anaemia [Recovered/Resolved]
  - Streptococcal bacteraemia [Recovered/Resolved]
  - Neutrophil count decreased [Recovered/Resolved]

NARRATIVE: CASE EVENT DATE: 20210521
